FAERS Safety Report 13927934 (Version 1)
Quarter: 2017Q3

REPORT INFORMATION
  Report Type: Report from Study
  Country: IT (occurrence: IT)
  Receive Date: 20170901
  Receipt Date: 20170901
  Transmission Date: 20171127
  Serious: Yes (Other)
  Sender: FDA-Public Use
  Company Number: IT-ROCHE-1986896

PATIENT
  Age: 70 Year
  Sex: Female

DRUGS (5)
  1. OMBITASVIR [Suspect]
     Active Substance: OMBITASVIR
     Indication: HEPATIC CIRRHOSIS
     Dosage: PERIOD: 12 WEEKS
     Route: 065
  2. PARITAPREVIR [Suspect]
     Active Substance: PARITAPREVIR
     Indication: HEPATIC CIRRHOSIS
     Dosage: PERIOD: 12 WEEKS
     Route: 065
  3. RITONAVIR. [Suspect]
     Active Substance: RITONAVIR
     Indication: HEPATIC CIRRHOSIS
     Dosage: PERIOD: 12 WEEKS
     Route: 065
  4. RIBAVIRIN. [Suspect]
     Active Substance: RIBAVIRIN
     Indication: HEPATIC CIRRHOSIS
     Dosage: PERIOD: 12 WEEKS
     Route: 065
  5. DASABUVIR [Suspect]
     Active Substance: DASABUVIR
     Indication: HEPATIC CIRRHOSIS
     Dosage: PERIOD: 12 WEEKS
     Route: 065

REACTIONS (1)
  - Photosensitivity reaction [Unknown]
